FAERS Safety Report 23277185 (Version 1)
Quarter: 2023Q4

REPORT INFORMATION
  Report Type: Spontaneous
  Country: GB (occurrence: None)
  Receive Date: 20231207
  Receipt Date: 20231207
  Transmission Date: 20240110
  Serious: Yes (Other)
  Sender: FDA-Public Use
  Company Number: None

PATIENT
  Age: 62 Year
  Sex: Male
  Weight: 83 kg

DRUGS (12)
  1. CIPROFLOXACIN [Suspect]
     Active Substance: CIPROFLOXACIN
     Indication: Device related infection
     Dosage: OTHER QUANTITY : 1 TABLET(S);?FREQUENCY : TWICE A DAY;?
     Route: 048
     Dates: start: 20131010, end: 20131012
  2. CIPROFLOXACIN [Suspect]
     Active Substance: CIPROFLOXACIN
     Indication: Urinary tract infection
  3. indwelling urinary catheter [Concomitant]
  4. PREGABALIN [Concomitant]
     Active Substance: PREGABALIN
  5. amolodypine [Concomitant]
  6. SERTRALINE [Concomitant]
     Active Substance: SERTRALINE HYDROCHLORIDE
  7. amoxycilin (prophylactic) [Concomitant]
  8. VITAMIN C [Concomitant]
     Active Substance: ASCORBIC ACID
  9. D3=K2 [Concomitant]
  10. B-COMPLEX PROBIOTIC COMPLEX [Concomitant]
  11. EVENING PRIMROSE OIL\HERBALS [Concomitant]
     Active Substance: EVENING PRIMROSE OIL\HERBALS
  12. DAO enzymes [Concomitant]

REACTIONS (12)
  - Pain [None]
  - Fear [None]
  - Arthralgia [None]
  - Myalgia [None]
  - Insomnia [None]
  - Somnolence [None]
  - Tinnitus [None]
  - Brain fog [None]
  - Rash [None]
  - Pruritus [None]
  - Mastocytosis [None]
  - Bedridden [None]

NARRATIVE: CASE EVENT DATE: 20131210
